FAERS Safety Report 13473538 (Version 2)
Quarter: 2017Q2

REPORT INFORMATION
  Report Type: Spontaneous
  Country: US (occurrence: US)
  Receive Date: 20170424
  Receipt Date: 20170523
  Transmission Date: 20170830
  Serious: No
  Sender: FDA-Public Use
  Company Number: US-BRISTOL-MYERS SQUIBB COMPANY-BMS-2017-032777

PATIENT
  Age: 45 Year
  Sex: Female

DRUGS (2)
  1. KENALOG-40 [Suspect]
     Active Substance: TRIAMCINOLONE ACETONIDE
     Indication: MUSCULOSKELETAL PAIN
     Dosage: 40 UNK, UNK
     Route: 030
     Dates: start: 20170322
  2. KENALOG-40 [Suspect]
     Active Substance: TRIAMCINOLONE ACETONIDE
     Indication: PRODUCT USED FOR UNKNOWN INDICATION
     Dosage: UNK
     Route: 030
     Dates: start: 20170411

REACTIONS (11)
  - Erythema [Unknown]
  - Rash [Unknown]
  - Asthenia [Unknown]
  - Nausea [Unknown]
  - Ageusia [Unknown]
  - Swelling [Unknown]
  - Dyspnoea [Unknown]
  - Feeling hot [Unknown]
  - Weight decreased [Unknown]
  - Flushing [Unknown]
  - Palpitations [Unknown]

NARRATIVE: CASE EVENT DATE: 20170322
